FAERS Safety Report 19680692 (Version 2)
Quarter: 2021Q3

REPORT INFORMATION
  Report Type: Report from Study
  Country: DE (occurrence: DE)
  Receive Date: 20210810
  Receipt Date: 20210824
  Transmission Date: 20211014
  Serious: Yes (Other)
  Sender: FDA-Public Use
  Company Number: DE-PFIZER INC-202100960959

PATIENT
  Age: 57 Year
  Sex: Female
  Weight: 79 kg

DRUGS (6)
  1. XELJANZ XR [Suspect]
     Active Substance: TOFACITINIB CITRATE
     Indication: RHEUMATOID ARTHRITIS
     Dosage: 11 MG, 1X/DAY, 1?0?0
     Dates: start: 20200930, end: 20210726
  2. ARCOXIA [Suspect]
     Active Substance: ETORICOXIB
     Indication: PAIN
     Dosage: UNK
     Dates: start: 20210120, end: 20210608
  3. METOPROLOL. [Concomitant]
     Active Substance: METOPROLOL
     Indication: MITRAL VALVE PROLAPSE
     Dosage: UNK
     Dates: start: 201707
  4. FUROSEMID [Concomitant]
     Active Substance: FUROSEMIDE
     Indication: LYMPHOEDEMA
     Dosage: UNK
     Dates: start: 2010
  5. RESTEX [Concomitant]
     Active Substance: BENSERAZIDE\LEVODOPA
     Indication: RESTLESS LEGS SYNDROME
     Dosage: UNK
     Dates: start: 201403
  6. LIXIANA [Concomitant]
     Active Substance: EDOXABAN TOSYLATE
     Indication: MITRAL VALVE PROLAPSE
     Dosage: UNK
     Dates: start: 201707

REACTIONS (3)
  - Hepatic enzyme increased [Recovering/Resolving]
  - Drug ineffective [Not Recovered/Not Resolved]
  - Renal impairment [Recovering/Resolving]

NARRATIVE: CASE EVENT DATE: 20210509
